FAERS Safety Report 9115838 (Version 1)
Quarter: 2013Q1

REPORT INFORMATION
  Report Type: Spontaneous
  Country: US (occurrence: US)
  Receive Date: 20130224
  Receipt Date: 20130224
  Transmission Date: 20140127
  Serious: No
  Sender: FDA-Public Use
  Company Number: US-009507513-1302USA008956

PATIENT
  Age: 8 Year
  Sex: Male

DRUGS (2)
  1. SINGULAIR [Suspect]
     Dosage: 4MG ORAL GRANULES
     Route: 048
     Dates: start: 200802
  2. NASALCROM [Concomitant]
     Dosage: UNK
     Dates: start: 201302, end: 201302

REACTIONS (1)
  - Cough [Unknown]
